FAERS Safety Report 16462472 (Version 1)
Quarter: 2019Q2

REPORT INFORMATION
  Report Type: Spontaneous
  Country: AT (occurrence: AT)
  Receive Date: 20190621
  Receipt Date: 20190621
  Transmission Date: 20190711
  Serious: Yes (Hospitalization, Other)
  Sender: FDA-Public Use
  Company Number: AT-TAKEDA-2019TUS038442

PATIENT
  Sex: Male

DRUGS (4)
  1. FLUOXETIN [Concomitant]
     Active Substance: FLUOXETINE HYDROCHLORIDE
     Dosage: UNK
  2. MIRTAZAPINE. [Concomitant]
     Active Substance: MIRTAZAPINE
     Dosage: UNK
  3. ENTYVIO [Suspect]
     Active Substance: VEDOLIZUMAB
     Indication: CROHN^S DISEASE
     Dosage: UNK
     Route: 042
     Dates: start: 201711, end: 201901
  4. LORAZEPAM. [Concomitant]
     Active Substance: LORAZEPAM
     Dosage: UNK

REACTIONS (4)
  - Intestinal fistula [Recovered/Resolved]
  - Intestinal mass [Recovered/Resolved]
  - Drug ineffective [Unknown]
  - Pyrexia [Unknown]

NARRATIVE: CASE EVENT DATE: 201902
